FAERS Safety Report 5201536-6 (Version None)
Quarter: 2006Q4

REPORT INFORMATION
  Report Type: 
  Country: None (occurrence: None)
  Receive Date: 20061005
  Receipt Date: 20060504
  Transmission Date: 20070319
  Serious: Yes (Disabling)
  Sender: FDA-Public Use
  Company Number: PHEH2006US05616

PATIENT
  Age: 51 Year
  Sex: Male
  Weight: 136.0791 kg

DRUGS (6)
  1. METOPROLOL TARTRATE [Suspect]
     Indication: HYPERTENSION
     Dates: start: 20040101
  2. PAROXETINE [Suspect]
     Dosage: 20 MG TID
     Dates: start: 20040101
  3. PLAVIX [Concomitant]
  4. LIPITOR [Concomitant]
  5. CAPTOPRIL [Concomitant]
  6. MICARDIS [Concomitant]

REACTIONS (6)
  - ANKLE FRACTURE [None]
  - BALANCE DISORDER [None]
  - DEPRESSION [None]
  - FALL [None]
  - NERVE INJURY [None]
  - NEURALGIA [None]
